FAERS Safety Report 7392664-8 (Version None)
Quarter: 2011Q2

REPORT INFORMATION
  Report Type: 
  Country: None (occurrence: None)
  Receive Date: 20110404
  Receipt Date: 20110328
  Transmission Date: 20111010
  Serious: Yes (Other)
  Sender: FDA-Public Use
  Company Number: US-TEVA-273661USA

PATIENT
  Age: 33 Year
  Sex: Female

DRUGS (2)
  1. PROGESTERONE [Suspect]
     Dosage: INTERMITTENT
  2. APRI TABLET 0.15/0.03MG [Suspect]
     Dosage: 20/150 UG

REACTIONS (7)
  - ANGIOEDEMA [None]
  - CHEST DISCOMFORT [None]
  - URTICARIA [None]
  - VULVAL OEDEMA [None]
  - DYSPNOEA [None]
  - VULVOVAGINAL ERYTHEMA [None]
  - COUGH [None]
